FAERS Safety Report 12249038 (Version 1)
Quarter: 2016Q2

REPORT INFORMATION
  Report Type: Spontaneous
  Country: US (occurrence: None)
  Receive Date: 20160407
  Receipt Date: 20160407
  Transmission Date: 20160815
  Serious: Yes (Hospitalization)
  Sender: FDA-Public Use
  Company Number: None

PATIENT
  Age: 42 Year
  Sex: Female
  Weight: 85.5 kg

DRUGS (12)
  1. MERCAPTOPURINE. [Suspect]
     Active Substance: MERCAPTOPURINE
     Dates: end: 20160121
  2. FIGRASTIM [Concomitant]
  3. CYCLOPHOSPHAMIDE. [Suspect]
     Active Substance: CYCLOPHOSPHAMIDE
     Dates: end: 20160108
  4. CYTARABINE. [Suspect]
     Active Substance: CYTARABINE
     Dates: end: 20160118
  5. FLUCONAZOLE. [Concomitant]
     Active Substance: FLUCONAZOLE
  6. METRONIDAZOLE. [Concomitant]
     Active Substance: METRONIDAZOLE
  7. METHOTREXATE [Suspect]
     Active Substance: METHOTREXATE
     Dates: end: 20160122
  8. CEFEPIME [Concomitant]
     Active Substance: CEFEPIME HYDROCHLORIDE
  9. VANCOMYCIN [Concomitant]
     Active Substance: VANCOMYCIN
  10. PIPERACILLIN AND TAZOBACTAM [Concomitant]
     Active Substance: PIPERACILLIN SODIUM\TAZOBACTAM SODIUM
  11. ONCASPAR [Suspect]
     Active Substance: PEGASPARGASE
     Dates: end: 20160122
  12. ACYCLOVIR. [Concomitant]
     Active Substance: ACYCLOVIR

REACTIONS (2)
  - Clostridium test positive [None]
  - Febrile neutropenia [None]

NARRATIVE: CASE EVENT DATE: 20160126
